FAERS Safety Report 5982994 (Version 2)
Quarter: 2020Q2

REPORT INFORMATION
  Report Type: Spontaneous
  Country: DE (occurrence: DE)
  Receive Date: 20041108
  Receipt Date: 20200401
  Transmission Date: 20200714
  Serious: Yes (Hospitalization)
  Sender: FDA-Public Use
  Company Number: DE-JNJFOC-20041007713

PATIENT
  Age: 52 Year
  Sex: Female

DRUGS (3)
  1. LEPONEX [Interacting]
     Active Substance: CLOZAPINE
     Route: 048
     Dates: start: 20020901, end: 20020905
  2. LEPONEX [Interacting]
     Active Substance: CLOZAPINE
     Indication: SCHIZOPHRENIA
     Route: 048
     Dates: start: 20020813, end: 20020831
  3. HALDOL [Suspect]
     Active Substance: HALOPERIDOL
     Indication: SCHIZOPHRENIA
     Route: 048
     Dates: start: 20020822, end: 20020902

REACTIONS (3)
  - Drug interaction [Recovered/Resolved]
  - Ultrasound scan abnormal [Recovered/Resolved]
  - Parotitis [Recovered/Resolved]

NARRATIVE: CASE EVENT DATE: 20020904
